FAERS Safety Report 7621404-X (Version None)
Quarter: 2011Q3

REPORT INFORMATION
  Report Type: 
  Country: None (occurrence: None)
  Receive Date: 20110719
  Receipt Date: 20110712
  Transmission Date: 20111222
  Serious: Yes (Other)
  Sender: FDA-Public Use
  Company Number: US-US-EMD SERONO, INC.-7070703

PATIENT
  Sex: Female

DRUGS (1)
  1. REBIF [Suspect]
     Indication: MULTIPLE SCLEROSIS
     Route: 058
     Dates: start: 20110413

REACTIONS (4)
  - SUICIDAL IDEATION [None]
  - DEPRESSED MOOD [None]
  - PARAESTHESIA [None]
  - DYSARTHRIA [None]
